FAERS Safety Report 10442492 (Version 2)
Quarter: 2014Q3

REPORT INFORMATION
  Report Type: Spontaneous
  Country: US (occurrence: None)
  Receive Date: 20140908
  Receipt Date: 20140924
  Transmission Date: 20150326
  Serious: Yes (Hospitalization)
  Sender: FDA-Public Use
  Company Number: 2014STPI000396

PATIENT
  Age: 45 Year
  Sex: Male
  Weight: 87 kg

DRUGS (5)
  1. PREDNISONE. [Suspect]
     Active Substance: PREDNISONE
     Indication: ACUTE LYMPHOCYTIC LEUKAEMIA
     Dosage: 12 MG, OTHER
     Route: 048
     Dates: start: 20140723
  2. ONCASPAR [Suspect]
     Active Substance: PEGASPARGASE
     Indication: ACUTE LYMPHOCYTIC LEUKAEMIA
     Route: 042
     Dates: start: 20140808, end: 20140808
  3. VINCRISTINE SULFATE. [Suspect]
     Active Substance: VINCRISTINE SULFATE
     Indication: ACUTE LYMPHOCYTIC LEUKAEMIA
     Dosage: 2 MG, OTHER
     Route: 042
     Dates: start: 20140723, end: 20140820
  4. DAUNORUBICIN HCL [Suspect]
     Active Substance: DAUNORUBICIN HYDROCHLORIDE
     Indication: ACUTE LYMPHOCYTIC LEUKAEMIA
     Dosage: 120 MG, OTHER
     Route: 042
     Dates: start: 20140723, end: 20140725
  5. G-CSF (G-CSF) [Concomitant]
     Active Substance: GRANULOCYTE COLONY-STIMULATING FACTOR NOS

REACTIONS (10)
  - Abdominal pain [None]
  - Colitis [None]
  - Blood urea increased [None]
  - Adrenal insufficiency [None]
  - Hyponatraemia [None]
  - Hyperkalaemia [None]
  - Hyperglycaemia [None]
  - Appendicitis [None]
  - Dizziness postural [None]
  - Hypernatraemia [None]

NARRATIVE: CASE EVENT DATE: 20140823
